FAERS Safety Report 9217571 (Version 1)
Quarter: 2013Q2

REPORT INFORMATION
  Report Type: Spontaneous
  Country: NO (occurrence: NO)
  Receive Date: 20130408
  Receipt Date: 20130412
  Transmission Date: 20140414
  Serious: Yes (Hospitalization)
  Sender: FDA-Public Use
  Company Number: NO-PFIZER INC-2013106507

PATIENT
  Age: 48 Year
  Sex: Male

DRUGS (8)
  1. SALAZOPYRIN EN-TABS [Suspect]
     Indication: PSORIATIC ARTHROPATHY
     Dosage: 1000 MG, 2X/DAY
     Route: 048
     Dates: start: 20120903, end: 20121206
  2. PREDNISOLON [Suspect]
     Indication: PSORIATIC ARTHROPATHY
     Dosage: 2.5 MG, 1X/DAY
     Route: 048
     Dates: start: 20120710
  3. SIMVASTATIN [Concomitant]
     Indication: HYPERCHOLESTEROLAEMIA
     Dosage: 40 MG, 1X/DAY
     Route: 048
  4. ALBYL-E [Concomitant]
     Indication: PROPHYLAXIS
     Dosage: 75 MG, 1X/DAY
     Route: 048
     Dates: start: 20101229
  5. LEVEMIR [Concomitant]
     Indication: DIABETES MELLITUS
     Dosage: 70 IU
     Route: 058
     Dates: start: 2012, end: 201301
  6. LANTUS [Concomitant]
     Indication: TYPE 1 DIABETES MELLITUS
     Dosage: 65 IU, 1X/DAY
     Route: 058
     Dates: start: 201301
  7. NOVORAPID [Concomitant]
     Indication: TYPE 1 DIABETES MELLITUS
     Dosage: 3-4 IU, 3-4 TIMES A DAY
     Route: 058
  8. PERSANTIN [Concomitant]
     Indication: THROMBOSIS PROPHYLAXIS
     Dosage: 200 MG, ALTERNATE DAY
     Route: 048
     Dates: start: 20101229

REACTIONS (3)
  - Hypoglycaemia [Not Recovered/Not Resolved]
  - Hypoglycaemia unawareness [Not Recovered/Not Resolved]
  - Diabetes mellitus inadequate control [Not Recovered/Not Resolved]
